FAERS Safety Report 16635101 (Version 4)
Quarter: 2020Q1

REPORT INFORMATION
  Report Type: Report from Study
  Country: None (occurrence: NL)
  Receive Date: 20190726
  Receipt Date: 20200303
  Transmission Date: 20200409
  Serious: Yes (Hospitalization, Other)
  Sender: FDA-Public Use
  Company Number: NL-ABBVIE-19S-114-2755655-00

PATIENT
  Sex: Male
  Weight: 88 kg

DRUGS (6)
  1. EXELON [Concomitant]
     Active Substance: RIVASTIGMINE TARTRATE
     Indication: PRODUCT USED FOR UNKNOWN INDICATION
  2. DUODOPA [Suspect]
     Active Substance: CARBIDOPA\LEVODOPA
     Indication: PARKINSON^S DISEASE
     Route: 050
     Dates: start: 20180703
  3. ROPINIROLE. [Concomitant]
     Active Substance: ROPINIROLE
     Indication: PRODUCT USED FOR UNKNOWN INDICATION
  4. DUODOPA [Suspect]
     Active Substance: CARBIDOPA\LEVODOPA
     Dosage: MORNING DOSE 9.0ML CONTINUOUS DOSE 2.6 EXTRA DOSE 2.0 CONTINUOUS NIGHT 1.5 EXTRA NIGHT 1.0
     Route: 050
  5. DUODOPA [Suspect]
     Active Substance: CARBIDOPA\LEVODOPA
     Dosage: MD: 9 CDD: 2.8 EDD: 2 CONTINUOUS DOSE NIGHT 1.5 EXTRA DOSE NIGHT 1 100ML/CONTINUOUS
     Route: 050
  6. DUODOPA [Suspect]
     Active Substance: CARBIDOPA\LEVODOPA
     Dosage: 100ML/CONTINUOUS
     Route: 050

REACTIONS (13)
  - Skin discolouration [Recovered/Resolved]
  - Mobility decreased [Unknown]
  - Post procedural haemorrhage [Unknown]
  - Device difficult to use [Unknown]
  - Nerve compression [Not Recovered/Not Resolved]
  - Neuralgia [Not Recovered/Not Resolved]
  - Inguinal hernia [Recovered/Resolved]
  - Gait disturbance [Not Recovered/Not Resolved]
  - Procedural pain [Unknown]
  - Bradyphrenia [Recovered/Resolved]
  - Post procedural complication [Recovered/Resolved]
  - Necrosis [Not Recovered/Not Resolved]
  - Post procedural swelling [Not Recovered/Not Resolved]

NARRATIVE: CASE EVENT DATE: 2019
